FAERS Safety Report 9761421 (Version 2)
Quarter: 2014Q1

REPORT INFORMATION
  Report Type: Spontaneous
  Country: US (occurrence: US)
  Receive Date: 20131216
  Receipt Date: 20140107
  Transmission Date: 20141002
  Serious: Yes (Other)
  Sender: FDA-Public Use
  Company Number: PHEH2013US025433

PATIENT
  Sex: Male

DRUGS (1)
  1. ARCAPTA [Suspect]
     Dosage: UNK
     Dates: start: 20130210, end: 20130611

REACTIONS (1)
  - Obstructive airways disorder [Recovered/Resolved]
